FAERS Safety Report 5034395-5 (Version None)
Quarter: 2006Q2

REPORT INFORMATION
  Report Type: 
  Country: None (occurrence: None)
  Receive Date: 20060626
  Receipt Date: 20060621
  Transmission Date: 20061013
  Serious: Yes (Death, Other)
  Sender: FDA-Public Use
  Company Number: PHBS2006JP09373

PATIENT
  Age: 42 Year
  Sex: Female

DRUGS (3)
  1. CYCLOSPORINE [Suspect]
     Indication: RENAL TRANSPLANT
     Route: 065
  2. PREDNISOLONE [Concomitant]
     Indication: RENAL TRANSPLANT
  3. AZATHIOPRINE [Concomitant]
     Indication: RENAL TRANSPLANT

REACTIONS (3)
  - ANAPLASTIC LARGE CELL LYMPHOMA T- AND NULL-CELL TYPES [None]
  - DIFFUSE LARGE B-CELL LYMPHOMA [None]
  - RESPIRATORY FAILURE [None]
